FAERS Safety Report 5464163-1 (Version None)
Quarter: 2007Q3

REPORT INFORMATION
  Report Type: 
  Country: None (occurrence: None)
  Receive Date: 20070921
  Receipt Date: 20070914
  Transmission Date: 20080115
  Serious: Yes (Death, Hospitalization, Other)
  Sender: FDA-Public Use
  Company Number: US-ROXANE LABORATORIES, INC-2007-DE-05524GD

PATIENT
  Age: 68 Year
  Sex: Male

DRUGS (12)
  1. RT-PA [Suspect]
     Indication: MESENTERIC OCCLUSION
     Route: 013
  2. MORPHINE SULFATE [Suspect]
     Indication: AGITATION
     Route: 042
  3. ASPIRIN [Concomitant]
  4. HYDROCORTISONE [Concomitant]
  5. ROSIGLITAZONE [Concomitant]
  6. GLIPIZIDE [Concomitant]
  7. METFORMIN [Concomitant]
  8. EPOGEN [Concomitant]
  9. GOSERELIN [Concomitant]
  10. KETOCONAZOLE [Concomitant]
  11. AMLODIPINE/BENAZEPRIL [Concomitant]
  12. HEPARIN [Concomitant]
     Route: 042

REACTIONS (5)
  - CARDIAC FAILURE CONGESTIVE [None]
  - CLOSTRIDIUM DIFFICILE COLITIS [None]
  - DEATH [None]
  - DRUG INEFFECTIVE [None]
  - RENAL FAILURE CHRONIC [None]
